FAERS Safety Report 7531219-9 (Version None)
Quarter: 2011Q2

REPORT INFORMATION
  Report Type: 
  Country: None (occurrence: None)
  Receive Date: 20110531
  Receipt Date: 20110517
  Transmission Date: 20111010
  Serious: Yes (Other)
  Sender: FDA-Public Use
  Company Number: DSA_46784_2011

PATIENT
  Sex: Female

DRUGS (9)
  1. ESCITALOPRAM [Concomitant]
  2. ZYPREXA [Suspect]
     Indication: PRODUCT USED FOR UNKNOWN INDICATION
     Dosage: (5 MG ORAL)
     Route: 048
     Dates: start: 20100610, end: 20100714
  3. NOVOTHYRAL [Concomitant]
  4. AMITRIPTYLINE HCL [Concomitant]
  5. OXAZEPAM [Concomitant]
  6. VALDOXAN (VALOXAN - AGOMELATINE) (NO SPECIFIED) [Suspect]
     Indication: PRODUCT USED FOR UNKNOWN INDICATION
     Dosage: (25 MG ORAL)
     Route: 048
     Dates: start: 20100510
  7. MIRTAZAPINE [Concomitant]
  8. WELLBUTRIN [Suspect]
     Indication: DEPRESSION
     Dosage: (150 MG DAILY ORAL)
     Route: 048
     Dates: start: 20100618, end: 20100701
  9. MOTRIM [Concomitant]

REACTIONS (1)
  - HEPATIC ENZYME INCREASED [None]
